FAERS Safety Report 7366680-6 (Version None)
Quarter: 2011Q1

REPORT INFORMATION
  Report Type: 
  Country: None (occurrence: None)
  Receive Date: 20110317
  Receipt Date: 20110317
  Transmission Date: 20110831
  Serious: Yes (Other)
  Sender: FDA-Public Use
  Company Number: None

PATIENT
  Age: 82 Year
  Sex: Male

DRUGS (1)
  1. PRADAXA [Suspect]
     Dosage: 150 MG BID PO
     Route: 048
     Dates: start: 20110310, end: 20110311

REACTIONS (2)
  - HAEMOPTYSIS [None]
  - INFUSION SITE HAEMORRHAGE [None]
